FAERS Safety Report 8734676 (Version 2)
Quarter: 2013Q2

REPORT INFORMATION
  Report Type: Spontaneous
  Country: IE (occurrence: IE)
  Receive Date: 20120821
  Receipt Date: 20130621
  Transmission Date: 20140414
  Serious: Yes (Other)
  Sender: FDA-Public Use
  Company Number: PHFR2012IE003562

PATIENT
  Age: 59 Year
  Sex: Male
  Weight: 74 kg

DRUGS (9)
  1. CLOZARIL [Suspect]
     Indication: SCHIZOPHRENIA
     Dosage: 600 MG, DIVIDED DOSES (200 MG TDS)
     Route: 048
     Dates: start: 20010701
  2. CLOZARIL [Suspect]
     Dosage: 600 MG, DIVIDED DOSES (200 MG TDS)
     Dates: start: 20110320
  3. ATORVASTATIN [Concomitant]
     Indication: LIPIDS INCREASED
     Dosage: 10 MG, DAILY
     Route: 048
     Dates: start: 20090619
  4. VALPROATE SODIUM [Concomitant]
     Indication: AFFECTIVE DISORDER
     Dosage: 1000 MG, DAILY
     Route: 048
     Dates: start: 20100205
  5. MACROGOL [Concomitant]
     Indication: CONSTIPATION
     Dosage: 1 SACHET
     Route: 048
     Dates: start: 20110311
  6. DIAZEPAM [Concomitant]
     Indication: ANXIETY
     Dosage: 2 MG, DAILY
     Route: 048
     Dates: start: 20110624
  7. FERROUS FUMARATE [Concomitant]
     Indication: HAEMOGLOBIN DECREASED
     Dosage: 200 MG, DAILY
     Route: 048
     Dates: start: 20120606
  8. OMEPRAZOLE [Concomitant]
     Dosage: 40 MG, UNK
     Route: 048
     Dates: start: 20120619
  9. FEXOFENADINE [Concomitant]
     Indication: FUNGAL INFECTION
     Dosage: 180 MG, DAILY
     Route: 048
     Dates: start: 20120720

REACTIONS (6)
  - Upper respiratory tract infection [Recovered/Resolved]
  - Pyrexia [Recovered/Resolved]
  - Type 2 diabetes mellitus [Recovering/Resolving]
  - Orthostatic hypotension [Recovering/Resolving]
  - Cough [Unknown]
  - Malaise [Unknown]
